FAERS Safety Report 10077588 (Version 1)
Quarter: 2014Q2

REPORT INFORMATION
  Report Type: Spontaneous
  Country: US (occurrence: US)
  Receive Date: 20140414
  Receipt Date: 20140414
  Transmission Date: 20141212
  Serious: No
  Sender: FDA-Public Use
  Company Number: US-BANPHARM-20131915

PATIENT
  Age: 41 Year
  Sex: Female
  Weight: 48.98 kg

DRUGS (2)
  1. NAPROXEN SODIUM 220 MG [Suspect]
     Indication: HEADACHE
     Dosage: 440 MG, QD,
     Route: 048
     Dates: start: 20131119, end: 20131120
  2. NAPROXEN SODIUM 220 MG [Suspect]
     Indication: HEADACHE
     Dosage: 440 MG, SINGLE,
     Route: 048
     Dates: start: 20131122, end: 20131122

REACTIONS (5)
  - Malaise [Recovered/Resolved]
  - Nausea [Unknown]
  - Diarrhoea [Unknown]
  - Abdominal pain upper [Unknown]
  - Feeling abnormal [Recovered/Resolved]
